FAERS Safety Report 9331512 (Version 2)
Quarter: 2013Q2

REPORT INFORMATION
  Report Type: Spontaneous
  Country: US (occurrence: US)
  Receive Date: 20130605
  Receipt Date: 20130624
  Transmission Date: 20140414
  Serious: No
  Sender: FDA-Public Use
  Company Number: US-PFIZER INC-2013165708

PATIENT
  Age: 70 Year
  Sex: Female
  Weight: 88.89 kg

DRUGS (5)
  1. AROMASIN [Suspect]
     Indication: INVASIVE LOBULAR BREAST CARCINOMA
     Dosage: 25 MG, DAILY (1 TABLET, AFTER BREAKFAST)
     Route: 048
     Dates: start: 2010
  2. AROMASIN [Suspect]
     Indication: OESTROGEN RECEPTOR POSITIVE BREAST CANCER
  3. CYTOMEL [Concomitant]
     Dosage: 25 UG, DAILY (1 TAB)
     Route: 048
  4. MAXZIDE-25 [Concomitant]
     Dosage: 37.5 MG-25MG, DAILY (1 TAB)
     Route: 048
  5. DILANTIN [Concomitant]
     Dosage: 100 MG, 3X/DAY
     Route: 048

REACTIONS (3)
  - Urticaria [Not Recovered/Not Resolved]
  - Abdominal distension [Unknown]
  - Flatulence [Unknown]
